FAERS Safety Report 7728414-2 (Version None)
Quarter: 2011Q3

REPORT INFORMATION
  Report Type: 
  Country: None (occurrence: None)
  Receive Date: 20110905
  Receipt Date: 20110825
  Transmission Date: 20111222
  Serious: Yes (Other)
  Sender: FDA-Public Use
  Company Number: US-AMGEN-USASP2011043753

PATIENT
  Age: 80 Year
  Sex: Male

DRUGS (1)
  1. ENBREL [Suspect]
     Indication: PSORIASIS
     Dosage: 50 MG, UNK
     Dates: start: 20040620, end: 20110401

REACTIONS (4)
  - DIARRHOEA [None]
  - BLADDER NEOPLASM [None]
  - BASAL CELL CARCINOMA [None]
  - ABDOMINAL DISCOMFORT [None]
